FAERS Safety Report 25352597 (Version 2)
Quarter: 2025Q2

REPORT INFORMATION
  Report Type: Spontaneous
  Country: EE (occurrence: EE)
  Receive Date: 20250523
  Receipt Date: 20250602
  Transmission Date: 20250716
  Serious: Yes (Hospitalization)
  Sender: VERTEX
  Company Number: EE-VERTEX PHARMACEUTICALS-2025-008287

PATIENT
  Age: 20 Year
  Sex: Male
  Weight: 44 kg

DRUGS (11)
  1. ELEXACAFTOR\IVACAFTOR\TEZACAFTOR [Suspect]
     Active Substance: ELEXACAFTOR\IVACAFTOR\TEZACAFTOR
     Indication: Cystic fibrosis
     Route: 048
     Dates: start: 20240701
  2. KALYDECO [Suspect]
     Active Substance: IVACAFTOR
     Indication: Cystic fibrosis
     Route: 048
     Dates: start: 20240701
  3. PULMOZYME [Concomitant]
     Active Substance: DORNASE ALFA
  4. SYMBICORT [Concomitant]
     Active Substance: BUDESONIDE\FORMOTEROL FUMARATE DIHYDRATE
  5. PANCRELIPASE [Concomitant]
     Active Substance: PANCRELIPASE
  6. Calcigran [Concomitant]
  7. CLINDAMYCIN [Concomitant]
     Active Substance: CLINDAMYCIN
  8. VITAMIN D3 [Concomitant]
     Active Substance: CHOLECALCIFEROL
  9. VITAMIN A [Concomitant]
     Active Substance: VITAMIN A
  10. CALCIUM [Concomitant]
     Active Substance: CALCIUM
  11. E Vita [Concomitant]

REACTIONS (3)
  - Confusional state [Recovered/Resolved with Sequelae]
  - Aggression [Recovered/Resolved]
  - Anxiety [Recovered/Resolved]

NARRATIVE: CASE EVENT DATE: 20250327
